FAERS Safety Report 21570537 (Version 2)
Quarter: 2022Q4

REPORT INFORMATION
  Report Type: Spontaneous
  Country: HR (occurrence: HR)
  Receive Date: 20221109
  Receipt Date: 20221209
  Transmission Date: 20230112
  Serious: Yes (Other)
  Sender: FDA-Public Use
  Company Number: HR-AMGEN-HRVSP2022189986

PATIENT
  Age: 73 Year
  Sex: Female

DRUGS (4)
  1. PROLIA [Suspect]
     Active Substance: DENOSUMAB
     Indication: Osteoporosis
     Dosage: 60 MILLIGRAM, Q6MO
     Route: 058
     Dates: start: 2016, end: 2020
  2. PROLIA [Suspect]
     Active Substance: DENOSUMAB
     Dosage: 60 MILLIGRAM, Q6MO
     Route: 058
     Dates: start: 2020
  3. TERIPARATIDE [Concomitant]
     Active Substance: TERIPARATIDE
     Dosage: 20 MICROGRAM (A TOTAL OF 24 MONTHS)
     Route: 058
     Dates: start: 202011
  4. CHOLECALCIFEROL [Concomitant]
     Active Substance: CHOLECALCIFEROL
     Dosage: 4000 UNK (4,000 IU)

REACTIONS (2)
  - Spinal compression fracture [Unknown]
  - Monoparesis [Unknown]

NARRATIVE: CASE EVENT DATE: 20200101
